FAERS Safety Report 7043993-9 (Version None)
Quarter: 2010Q4

REPORT INFORMATION
  Report Type: 
  Country: None (occurrence: None)
  Receive Date: 20101013
  Receipt Date: 20091127
  Transmission Date: 20110411
  Serious: No
  Sender: FDA-Public Use
  Company Number: US-AMGEN-KDL377019

PATIENT
  Sex: Male

DRUGS (3)
  1. VECTIBIX [Suspect]
     Indication: COLORECTAL CANCER
     Dates: start: 20091112
  2. UNSPECIFIED MEDICATION [Concomitant]
     Dates: start: 20091112
  3. MINOCYCLINE HCL [Concomitant]
     Dates: start: 20091126

REACTIONS (3)
  - BURNING SENSATION [None]
  - DERMATITIS DIAPER [None]
  - RASH ERYTHEMATOUS [None]
